FAERS Safety Report 10674337 (Version 2)
Quarter: 2015Q4

REPORT INFORMATION
  Report Type: Spontaneous
  Country: US (occurrence: US)
  Receive Date: 20141224
  Receipt Date: 20151005
  Transmission Date: 20160304
  Serious: No
  Sender: FDA-Public Use
  Company Number: US-PFIZER INC-2014348937

PATIENT
  Age: 60 Year
  Sex: Male

DRUGS (1)
  1. SUTENT [Suspect]
     Active Substance: SUNITINIB MALATE
     Indication: RENAL CANCER METASTATIC
     Dosage: 50 MG, 1X/DAY
     Dates: start: 201408

REACTIONS (4)
  - Nausea [Unknown]
  - Dry mouth [Unknown]
  - Renal cancer metastatic [Unknown]
  - Disease progression [Unknown]

NARRATIVE: CASE EVENT DATE: 201410
